FAERS Safety Report 5006101-1 (Version None)
Quarter: 2006Q1

REPORT INFORMATION
  Report Type: 
  Country: None (occurrence: None)
  Receive Date: 20060328
  Receipt Date: 20060220
  Transmission Date: 20060701
  Serious: Yes (Hospitalization)
  Sender: FDA-Public Use
  Company Number: 06P-163-0325548-00

PATIENT
  Age: 52 Year
  Sex: Female
  Weight: 90.7194 kg

DRUGS (5)
  1. HUMIRA [Suspect]
     Indication: RHEUMATOID ARTHRITIS
     Dosage: 40 MG, 1 IN 2 WK, SUBCUTANEOUS
     Route: 058
     Dates: start: 20050701, end: 20051101
  2. HUMIRA [Suspect]
     Indication: RHEUMATOID ARTHRITIS
     Dosage: 40 MG, 1 IN 2 WK, SUBCUTANEOUS
     Route: 058
     Dates: start: 20051201, end: 20060101
  3. PREDNISONE [Suspect]
     Indication: RHEUMATOID ARTHRITIS
     Dosage: 5 MG, PER ORAL
     Route: 048
  4. PIROXICAM [Concomitant]
  5. AURANOFIN [Concomitant]

REACTIONS (4)
  - BLISTER INFECTED [None]
  - RHEUMATOID ARTHRITIS [None]
  - SINUSITIS [None]
  - STAPHYLOCOCCAL INFECTION [None]
